FAERS Safety Report 4314205-1 (Version None)
Quarter: 2004Q1

REPORT INFORMATION
  Report Type: 
  Country: None (occurrence: None)
  Receive Date: 20040309
  Receipt Date: 20040227
  Transmission Date: 20041129
  Serious: Yes (Hospitalization)
  Sender: FDA-Public Use
  Company Number: US-BRISTOL-MYERS SQUIBB COMPANY-12519294

PATIENT
  Age: 54 Year
  Sex: Female

DRUGS (9)
  1. CARBOPLATIN [Suspect]
     Indication: OVARIAN CANCER
     Route: 042
     Dates: start: 20030611, end: 20030611
  2. PACLITAXEL [Suspect]
     Indication: OVARIAN CANCER
     Route: 042
     Dates: start: 20030611, end: 20030611
  3. COUMADIN [Suspect]
     Route: 048
     Dates: start: 20030401, end: 20030614
  4. INTERFERON GAMMA [Suspect]
     Indication: OVARIAN CANCER
     Route: 058
     Dates: start: 20030611, end: 20030613
  5. LISINOPRIL [Concomitant]
     Dates: start: 19930101
  6. ZOCOR [Concomitant]
     Dates: start: 19930101
  7. ACTOS [Concomitant]
     Dates: start: 19980101
  8. ZOFRAN [Concomitant]
     Dates: start: 20030612
  9. ACETAMINOPHEN [Concomitant]
     Dates: start: 20030611

REACTIONS (8)
  - ANAEMIA [None]
  - DRUG LEVEL INCREASED [None]
  - FLANK PAIN [None]
  - HAEMATURIA [None]
  - INTERNATIONAL NORMALISED RATIO INCREASED [None]
  - NAUSEA [None]
  - URINARY TRACT INFECTION [None]
  - VOMITING [None]
